FAERS Safety Report 6482613-9 (Version None)
Quarter: 2009Q4

REPORT INFORMATION
  Report Type: 
  Country: None (occurrence: None)
  Receive Date: 20091209
  Receipt Date: 20091127
  Transmission Date: 20100525
  Serious: Yes (Death, Hospitalization)
  Sender: FDA-Public Use
  Company Number: US-RANBAXY-2009US-29542

PATIENT

DRUGS (11)
  1. ISOPTIN SR [Suspect]
     Indication: DRUG USE FOR UNKNOWN INDICATION
     Dosage: 120 MG, UNK
     Route: 048
     Dates: end: 20080310
  2. RAMIPRIL [Concomitant]
     Indication: DRUG USE FOR UNKNOWN INDICATION
     Dosage: 5 MG, UNK
     Route: 048
     Dates: end: 20080310
  3. FUROSEMIDE [Concomitant]
     Indication: DRUG USE FOR UNKNOWN INDICATION
     Dosage: 40 MG, UNK
     Route: 048
     Dates: end: 20080310
  4. DYAZIDE [Concomitant]
     Indication: DRUG USE FOR UNKNOWN INDICATION
     Dosage: 50/25 MG, UNK
     Route: 048
     Dates: end: 20080310
  5. DOMPERIDONE [Concomitant]
     Indication: DRUG USE FOR UNKNOWN INDICATION
     Dosage: 20 MG, UNK
     Route: 048
     Dates: start: 20080305, end: 20080310
  6. CIPROFLOXACIN [Concomitant]
     Indication: DRUG USE FOR UNKNOWN INDICATION
     Dosage: 500 MG, UNK
     Route: 048
     Dates: start: 20080304, end: 20080310
  7. ACETYLSALICYLIC ACID [Concomitant]
     Indication: DRUG USE FOR UNKNOWN INDICATION
     Dosage: 80 MG, UNK
     Route: 048
     Dates: end: 20080213
  8. ACETYLSALICYLIC ACID [Concomitant]
     Dosage: 40 MG, UNK
     Route: 048
     Dates: start: 20080305, end: 20080307
  9. ACETYLSALICYLIC ACID [Concomitant]
     Dosage: 80 MG, UNK
     Route: 048
     Dates: end: 20080309
  10. RISPERIDONE [Concomitant]
     Indication: DRUG USE FOR UNKNOWN INDICATION
     Dosage: 1 MG, UNK
     Route: 048
     Dates: start: 20080227, end: 20080303
  11. RISPERIDONE [Concomitant]
     Dosage: 0.5 MG, UNK
     Route: 048
     Dates: start: 20080304, end: 20080310

REACTIONS (13)
  - CARDIAC FAILURE [None]
  - CIRCULATORY COLLAPSE [None]
  - DEPRESSION [None]
  - DIARRHOEA HAEMORRHAGIC [None]
  - DIZZINESS [None]
  - GASTROENTERITIS NOROVIRUS [None]
  - GENERAL PHYSICAL HEALTH DETERIORATION [None]
  - HALLUCINATION [None]
  - HYPOTENSION [None]
  - NAUSEA [None]
  - PARANOIA [None]
  - PNEUMONIA [None]
  - VOMITING [None]
